FAERS Safety Report 5836795-X (Version None)
Quarter: 2008Q3

REPORT INFORMATION
  Report Type: 
  Country: None (occurrence: None)
  Receive Date: 20080807
  Receipt Date: 20080804
  Transmission Date: 20090109
  Serious: Yes (Death)
  Sender: FDA-Public Use
  Company Number: FR-AVENTIS-200812886FR

PATIENT
  Age: 74 Year
  Sex: Male

DRUGS (7)
  1. LASIX [Suspect]
     Route: 048
     Dates: start: 20080529, end: 20080615
  2. CIFLOX                             /00697201/ [Suspect]
     Route: 048
     Dates: start: 20080606, end: 20080615
  3. ZENTEL [Suspect]
     Indication: TOXOCARIASIS
     Route: 048
     Dates: start: 20080529, end: 20080615
  4. AVLOCARDYL [Concomitant]
  5. DUPHALAC                           /00163401/ [Concomitant]
  6. XYZAL [Concomitant]
  7. ALDACTONE [Concomitant]

REACTIONS (1)
  - PANCYTOPENIA [None]
